FAERS Safety Report 9471471 (Version 16)
Quarter: 2019Q4

REPORT INFORMATION
  Report Type: Report from Study
  Country: JP (occurrence: JP)
  Receive Date: 20130822
  Receipt Date: 20191202
  Transmission Date: 20200122
  Serious: Yes (Congenital Anomaly, Other)
  Sender: FDA-Public Use
  Company Number: JP-JNJFOC-20130809066

PATIENT
  Age: 58 Year
  Sex: Male

DRUGS (34)
  1. NORVIR [Suspect]
     Active Substance: RITONAVIR
     Route: 048
     Dates: start: 20141204
  2. ZITHROMAC [Concomitant]
     Active Substance: AZITHROMYCIN DIHYDRATE
     Indication: PROPHYLAXIS
     Route: 065
     Dates: start: 20061004, end: 20070104
  3. RIVOTRIL [Concomitant]
     Active Substance: CLONAZEPAM
     Route: 048
     Dates: start: 20141121
  4. PREZISTA [Suspect]
     Active Substance: DARUNAVIR ETHANOLATE
     Route: 048
     Dates: start: 20141204
  5. NORVIR [Suspect]
     Active Substance: RITONAVIR
     Indication: HIV INFECTION
     Route: 048
     Dates: start: 20120229, end: 20130129
  6. PERAPRIN [Concomitant]
     Active Substance: METOCLOPRAMIDE
     Route: 048
     Dates: start: 20120509, end: 20130129
  7. PERAPRIN [Concomitant]
     Active Substance: METOCLOPRAMIDE
     Route: 048
     Dates: start: 20151126
  8. FEBURIC [Concomitant]
     Active Substance: FEBUXOSTAT
     Indication: HYPERURICAEMIA
     Route: 048
     Dates: start: 20150326
  9. CELSENTRI [Concomitant]
     Active Substance: MARAVIROC
     Indication: HIV INFECTION
     Route: 048
     Dates: start: 20141204
  10. EPZICOM [Suspect]
     Active Substance: ABACAVIR SULFATE\LAMIVUDINE
     Indication: HIV INFECTION
     Route: 048
     Dates: start: 20120229, end: 20140923
  11. EDURANT [Concomitant]
     Active Substance: RILPIVIRINE HYDROCHLORIDE
     Indication: HIV INFECTION
     Route: 048
     Dates: start: 20130130, end: 20140923
  12. BAKTAR [Concomitant]
     Active Substance: SULFAMETHOXAZOLE\TRIMETHOPRIM
     Indication: PNEUMOCYSTIS JIROVECII PNEUMONIA
     Route: 048
     Dates: start: 20141121, end: 20150722
  13. PREDNISOLONE. [Concomitant]
     Active Substance: PREDNISOLONE
     Indication: PNEUMOCYSTIS JIROVECII PNEUMONIA
     Route: 048
     Dates: start: 20141121, end: 20141212
  14. KALETRA [Suspect]
     Active Substance: LOPINAVIR\RITONAVIR
     Route: 048
     Dates: start: 20100401, end: 20120228
  15. BONOTEO [Concomitant]
     Active Substance: MINODRONIC ACID
     Route: 048
     Dates: start: 20150623
  16. DIAZEPAM. [Concomitant]
     Active Substance: DIAZEPAM
     Indication: ESSENTIAL TREMOR
     Route: 048
     Dates: start: 20110401, end: 20111026
  17. PRIMIDONE. [Concomitant]
     Active Substance: PRIMIDONE
     Indication: ESSENTIAL TREMOR
     Route: 048
     Dates: start: 20120927, end: 20130130
  18. KALETRA [Suspect]
     Active Substance: LOPINAVIR\RITONAVIR
     Indication: HIV INFECTION
     Route: 048
     Dates: start: 20061031, end: 20100331
  19. DIAZEPAM. [Concomitant]
     Active Substance: DIAZEPAM
     Route: 048
     Dates: start: 20130131, end: 20130228
  20. RIVOTRIL [Concomitant]
     Active Substance: CLONAZEPAM
     Route: 048
     Dates: start: 20120216, end: 20120321
  21. XYZAL [Concomitant]
     Active Substance: LEVOCETIRIZINE DIHYDROCHLORIDE
     Indication: PRURITUS
     Route: 048
     Dates: start: 20150423, end: 20171129
  22. TRUVADA [Suspect]
     Active Substance: EMTRICITABINE\TENOFOVIR DISOPROXIL FUMARATE
     Indication: HIV INFECTION
     Route: 048
     Dates: start: 20061031, end: 20120228
  23. BONOTEO [Concomitant]
     Active Substance: MINODRONIC ACID
     Indication: OSTEOPOROSIS
     Route: 048
     Dates: start: 20120927, end: 20141120
  24. DIAZEPAM. [Concomitant]
     Active Substance: DIAZEPAM
     Route: 048
     Dates: start: 20120105, end: 20120215
  25. DIAZEPAM. [Concomitant]
     Active Substance: DIAZEPAM
     Route: 048
     Dates: start: 20130301, end: 20141120
  26. ZITHROMAC [Concomitant]
     Active Substance: AZITHROMYCIN DIHYDRATE
     Route: 065
     Dates: start: 20141121, end: 20141224
  27. PERAPRIN [Concomitant]
     Active Substance: METOCLOPRAMIDE
     Indication: NAUSEA
     Route: 048
     Dates: start: 20120404, end: 20120508
  28. VALIXA [Concomitant]
     Active Substance: VALGANCICLOVIR
     Indication: CYTOMEGALOVIRUS INFECTION
     Route: 048
     Dates: start: 20141203, end: 20141211
  29. HARNAL [Concomitant]
     Active Substance: TAMSULOSIN HYDROCHLORIDE
     Indication: BENIGN PROSTATIC HYPERPLASIA
     Route: 048
     Dates: start: 20141201
  30. BAKTAR [Concomitant]
     Active Substance: SULFAMETHOXAZOLE\TRIMETHOPRIM
     Indication: PNEUMOCYSTIS JIROVECII PNEUMONIA
     Route: 048
     Dates: start: 20140924, end: 20141120
  31. PREZISTA [Suspect]
     Active Substance: DARUNAVIR ETHANOLATE
     Indication: HIV INFECTION
     Route: 048
     Dates: start: 20120229, end: 20130129
  32. RIVOTRIL [Concomitant]
     Active Substance: CLONAZEPAM
     Indication: ESSENTIAL TREMOR
     Route: 048
     Dates: start: 20111027, end: 20120104
  33. RIVOTRIL [Concomitant]
     Active Substance: CLONAZEPAM
     Route: 048
     Dates: start: 20120322, end: 20120926
  34. CLARITHROMYCIN. [Concomitant]
     Active Substance: CLARITHROMYCIN
     Indication: PROPHYLAXIS
     Route: 048
     Dates: start: 20141225, end: 20150123

REACTIONS (10)
  - Pruritus [Recovering/Resolving]
  - Hyperuricaemia [Not Recovered/Not Resolved]
  - Hypo HDL cholesterolaemia [Not Recovered/Not Resolved]
  - Nausea [Recovered/Resolved]
  - Osteoporosis [Not Recovered/Not Resolved]
  - Pneumocystis jirovecii pneumonia [Recovering/Resolving]
  - Hypertriglyceridaemia [Not Recovered/Not Resolved]
  - Cytomegalovirus test positive [Recovering/Resolving]
  - Blood alkaline phosphatase increased [Recovered/Resolved]
  - Benign prostatic hyperplasia [Not Recovered/Not Resolved]

NARRATIVE: CASE EVENT DATE: 201203
